FAERS Safety Report 5628831-0 (Version None)
Quarter: 2008Q1

REPORT INFORMATION
  Report Type: 
  Country: None (occurrence: None)
  Receive Date: 20080215
  Receipt Date: 20080207
  Transmission Date: 20080703
  Serious: Yes (Other)
  Sender: FDA-Public Use
  Company Number: AU-PFIZER INC-2008012847

PATIENT
  Age: 48 Year
  Sex: Female

DRUGS (1)
  1. DEPO-PROVERA SUSPENSION/INJ [Suspect]

REACTIONS (2)
  - AMENORRHOEA [None]
  - MULTIPLE MYELOMA [None]
